FAERS Safety Report 6818372-7 (Version None)
Quarter: 2010Q3

REPORT INFORMATION
  Report Type: 
  Country: None (occurrence: None)
  Receive Date: 20100706
  Receipt Date: 20080229
  Transmission Date: 20110219
  Serious: No
  Sender: FDA-Public Use
  Company Number: US-PFIZER INC-2008019892

PATIENT
  Age: 24 Month
  Sex: Male

DRUGS (3)
  1. ZITHROMAX [Suspect]
     Route: 048
  2. ORAPRED [Suspect]
  3. XOPENEX [Suspect]

REACTIONS (1)
  - PALLOR [None]
